FAERS Safety Report 9143674 (Version 1)
Quarter: 2013Q1

REPORT INFORMATION
  Report Type: Spontaneous
  Country: IL (occurrence: IL)
  Receive Date: 20130306
  Receipt Date: 20130306
  Transmission Date: 20140127
  Serious: Yes (Death, Hospitalization, Other)
  Sender: FDA-Public Use
  Company Number: IL-ROCHE-1197689

PATIENT
  Age: 1 Year
  Sex: Female

DRUGS (1)
  1. ROCEPHIN [Suspect]
     Indication: INFECTION
     Route: 065

REACTIONS (5)
  - Death [Fatal]
  - Rash [Unknown]
  - Anaemia [Unknown]
  - Hepatic function abnormal [Unknown]
  - Renal impairment [Unknown]
